FAERS Safety Report 5483167-6 (Version None)
Quarter: 2007Q4

REPORT INFORMATION
  Report Type: 
  Country: None (occurrence: None)
  Receive Date: 20071009
  Receipt Date: 20070510
  Transmission Date: 20080405
  Serious: Yes (Hospitalization)
  Sender: FDA-Public Use
  Company Number: 2007SP020262

PATIENT
  Age: 21 Year
  Sex: Male

DRUGS (1)
  1. BETAMETHASONE DIPROPIONATE [Suspect]
     Indication: ANTIINFLAMMATORY THERAPY
     Dosage: 1 DF; ONCE
     Dates: start: 20070420, end: 20070420

REACTIONS (1)
  - CELLULITIS [None]
